FAERS Safety Report 8403313-1 (Version None)
Quarter: 2012Q2

REPORT INFORMATION
  Report Type: 
  Country: None (occurrence: None)
  Receive Date: 20120601
  Receipt Date: 20080311
  Transmission Date: 20120825
  Serious: Yes (Hospitalization, Other)
  Sender: FDA-Public Use
  Company Number: JP-BRISTOL-MYERS SQUIBB COMPANY-14073928

PATIENT
  Age: 37 Year
  Sex: Male

DRUGS (5)
  1. ZYPREXA [Suspect]
     Indication: SCHIZOPHRENIA
     Dosage: 15MGTABLET TILL 13FEB07.14FEB07-23JUL07,160 DAYS,20MG,QD. 24JUL07-23JAN08,184 DAYS,15 MG,QD.
     Route: 048
     Dates: start: 20080124, end: 20080124
  2. ABILIFY [Suspect]
     Indication: SCHIZOPHRENIA
     Dosage: 10OCT07-8NOV07 3MG;9NOV07-6DEC07,6MG QD28; 7DEC07-15JAN08,12MG,QD.16-23JAN08 30MG/QD.
     Route: 048
     Dates: start: 20080124, end: 20080124
  3. RISPERDAL [Concomitant]
     Dates: start: 20070724, end: 20071108
  4. LEVOTOMIN [Concomitant]
  5. LORAZEPAM [Concomitant]
     Dates: start: 20070508, end: 20071108

REACTIONS (8)
  - ALTERED STATE OF CONSCIOUSNESS [None]
  - IRRITABILITY [None]
  - HALLUCINATION, AUDITORY [None]
  - SUICIDE ATTEMPT [None]
  - DELUSION [None]
  - INTENTIONAL OVERDOSE [None]
  - RESTLESSNESS [None]
  - HYPERPHAGIA [None]
